FAERS Safety Report 24805987 (Version 2)
Quarter: 2025Q4

REPORT INFORMATION
  Report Type: Spontaneous
  Country: US (occurrence: US)
  Receive Date: 20250103
  Receipt Date: 20251001
  Transmission Date: 20260117
  Serious: No
  Sender: PFIZER
  Company Number: US-PFIZER INC-202400335368

PATIENT
  Age: 68 Year
  Sex: Male

DRUGS (1)
  1. VELSIPITY [Suspect]
     Active Substance: ETRASIMOD ARGININE
     Dosage: UNK

REACTIONS (2)
  - Cardiac disorder [Unknown]
  - Circumstance or information capable of leading to medication error [Unknown]
